FAERS Safety Report 4305185-3 (Version None)
Quarter: 2004Q1

REPORT INFORMATION
  Report Type: 
  Country: None (occurrence: None)
  Receive Date: 20040225
  Receipt Date: 20040225
  Transmission Date: 20041129
  Serious: No
  Sender: FDA-Public Use
  Company Number: None

PATIENT
  Sex: Female

DRUGS (1)
  1. VINORELBINE TARTRATE [Suspect]
     Indication: CERVIX CARCINOMA
     Dosage: 30 MG /M2 IV X 1
     Route: 042
     Dates: start: 20031003

REACTIONS (6)
  - BURNING SENSATION [None]
  - ERYTHEMA [None]
  - MOBILITY DECREASED [None]
  - PAIN IN EXTREMITY [None]
  - SCAB [None]
  - SKIN DISCOLOURATION [None]
